FAERS Safety Report 9081055 (Version 1)
Quarter: 2013Q1

REPORT INFORMATION
  Report Type: Spontaneous
  Country: US (occurrence: US)
  Receive Date: 20130218
  Receipt Date: 20130218
  Transmission Date: 20140127
  Serious: No
  Sender: FDA-Public Use
  Company Number: US-PFIZER INC-2013040379

PATIENT
  Sex: Male

DRUGS (2)
  1. LIPITOR [Suspect]
     Dosage: 10 MG, UNK
     Dates: end: 2013
  2. LIPITOR [Suspect]
     Dosage: 20 MG, UNK
     Dates: start: 2013

REACTIONS (1)
  - Blood cholesterol increased [Unknown]
